FAERS Safety Report 8028273-7 (Version None)
Quarter: 2012Q1

REPORT INFORMATION
  Report Type: 
  Country: None (occurrence: None)
  Receive Date: 20120104
  Receipt Date: 20120104
  Transmission Date: 20120608
  Serious: Yes (Other)
  Sender: FDA-Public Use
  Company Number: 1022556-2012-00001

PATIENT
  Sex: Male

DRUGS (1)
  1. ACT TOTAL CARE FRESH MINT 18 OZ [Suspect]
     Indication: DENTAL DISORDER PROPHYLAXIS
     Dosage: ORAL RINSE
     Route: 048

REACTIONS (2)
  - CHEMICAL INJURY [None]
  - ORAL DISORDER [None]
